FAERS Safety Report 23051223 (Version 1)
Quarter: 2023Q4

REPORT INFORMATION
  Report Type: Spontaneous
  Country: US (occurrence: None)
  Receive Date: 20231009
  Receipt Date: 20231009
  Transmission Date: 20240109
  Serious: Yes (Disabling)
  Sender: FDA-Public Use
  Company Number: None

PATIENT
  Age: 50 Year
  Sex: Female
  Weight: 74.25 kg

DRUGS (12)
  1. SHINGRIX [Suspect]
     Active Substance: RECOMBINANT VARICELLA ZOSTER VIRUS (VZV) GLYCOPROTEIN E
     Indication: Immunisation
     Dates: start: 20230320, end: 20230320
  2. SYNTHROID [Concomitant]
     Active Substance: LEVOTHYROXINE SODIUM
  3. CORTEF [Concomitant]
     Active Substance: HYDROCORTISONE
  4. PROMETRIUM [Concomitant]
     Active Substance: PROGESTERONE
  5. ESTRADIOL TRANSDERMAL SYSTEM [Concomitant]
     Active Substance: ESTRADIOL
  6. OZEMPIC [Concomitant]
     Active Substance: SEMAGLUTIDE
  7. NORDITROPIN [Concomitant]
     Active Substance: SOMATROPIN
  8. METHYLPHENIDATE [Concomitant]
     Active Substance: METHYLPHENIDATE
  9. effexor/venlafaxine [Concomitant]
  10. TYLENOL [Concomitant]
     Active Substance: ACETAMINOPHEN
  11. PROZAC [Suspect]
     Active Substance: FLUOXETINE HYDROCHLORIDE
  12. VENLAFAXINE [Suspect]
     Active Substance: VENLAFAXINE HYDROCHLORIDE

REACTIONS (12)
  - Pain in extremity [None]
  - Hallucination, auditory [None]
  - Facial pain [None]
  - Ear discomfort [None]
  - Ear discomfort [None]
  - Malaise [None]
  - Fatigue [None]
  - Dizziness [None]
  - Tinnitus [None]
  - Vertigo [None]
  - Dyspepsia [None]
  - Deafness [None]

NARRATIVE: CASE EVENT DATE: 20230628
